FAERS Safety Report 8501947-7 (Version None)
Quarter: 2012Q3

REPORT INFORMATION
  Report Type: 
  Country: None (occurrence: None)
  Receive Date: 20120711
  Receipt Date: 20120709
  Transmission Date: 20120928
  Serious: Yes (Hospitalization)
  Sender: FDA-Public Use
  Company Number: PHHY2012FI051399

PATIENT
  Sex: Male

DRUGS (11)
  1. APURIN [Concomitant]
     Dosage: 300 MG, ONCE A DAY
     Route: 048
  2. COTRIM DS [Concomitant]
     Dosage: UNK UKN, UNK
  3. ZOMETA [Suspect]
     Indication: MULTIPLE MYELOMA
     Dosage: 4 MG/5ML
     Dates: start: 20090101, end: 20120606
  4. KALCIPOS-D [Concomitant]
     Dosage: 1 DF, BID
     Route: 048
  5. ORLOC [Concomitant]
     Dosage: 5 MG, ONCE A DAY
     Route: 048
  6. ENOXAPARIN SODIUM [Concomitant]
     Dosage: 20 MG, ONCE A DAY
     Route: 058
  7. ISMOX [Concomitant]
     Dosage: 1 DF, BID
  8. CORTICOSTEROIDS [Concomitant]
  9. VALAVIR [Concomitant]
     Dosage: 1 DF, BID
     Route: 048
  10. DEXAMETASON [Concomitant]
     Dosage: 39 MG, PER WEEK
     Route: 048
  11. VELCADE [Concomitant]
     Dosage: 3.5 MG, UNK
     Route: 058

REACTIONS (2)
  - OSTEONECROSIS OF JAW [None]
  - EXPOSED BONE IN JAW [None]
